FAERS Safety Report 15160665 (Version 1)
Quarter: 2018Q3

REPORT INFORMATION
  Report Type: Spontaneous
  Country: US (occurrence: US)
  Receive Date: 20180621
  Receipt Date: 20180621
  Transmission Date: 20181010
  Serious: Yes (Other)
  Sender: FDA-Public Use
  Company Number: None

PATIENT
  Age: 73 Year
  Sex: Male
  Weight: 47 kg

DRUGS (4)
  1. BELATACEPT [Suspect]
     Active Substance: BELATACEPT
     Indication: IMMUNOSUPPRESSION
     Dosage: ?          OTHER FREQUENCY:EVERY 4 WEEKS;?
     Route: 042
     Dates: start: 20131029, end: 20180616
  2. PREDNISONE. [Concomitant]
     Active Substance: PREDNISONE
     Dates: start: 20131102
  3. VALGANCICLOVIR. [Concomitant]
     Active Substance: VALGANCICLOVIR
     Dates: start: 20131029
  4. MYCOPHENOLATE [Concomitant]
     Active Substance: MYCOPHENOLIC ACID
     Dates: start: 20131029, end: 20180616

REACTIONS (3)
  - Extranodal marginal zone B-cell lymphoma (MALT type) [None]
  - Epstein-Barr virus antigen positive [None]
  - Drug ineffective [None]

NARRATIVE: CASE EVENT DATE: 20180619
